FAERS Safety Report 8097510-5 (Version None)
Quarter: 2012Q1

REPORT INFORMATION
  Report Type: 
  Country: None (occurrence: None)
  Receive Date: 20120131
  Receipt Date: 20111202
  Transmission Date: 20120608
  Serious: Yes (Other)
  Sender: FDA-Public Use
  Company Number: CN-UCBSA-047106

PATIENT

DRUGS (1)
  1. ISOSORBIDE MONONITRATE [Suspect]
     Dosage: UNKNOWN DOSAGE

REACTIONS (1)
  - CARDIOVASCULAR DISORDER [None]
